FAERS Safety Report 4514820-6 (Version None)
Quarter: 2004Q4

REPORT INFORMATION
  Report Type: 
  Country: None (occurrence: None)
  Receive Date: 20041126
  Receipt Date: 20041111
  Transmission Date: 20050328
  Serious: Yes (Hospitalization)
  Sender: FDA-Public Use
  Company Number: 2003AP02988

PATIENT
  Age: 68 Year
  Sex: Male
  Weight: 57 kg

DRUGS (6)
  1. IRESSA [Suspect]
     Indication: COLORECTAL CANCER METASTATIC
     Dosage: 250 MG DAILY PO
     Route: 048
     Dates: start: 20030715
  2. FLUOROURACIL [Suspect]
     Indication: COLORECTAL CANCER METASTATIC
     Dosage: 400 MG/M2 IV
     Route: 042
     Dates: start: 20030819, end: 20030820
  3. FLUOROURACIL [Suspect]
     Indication: COLORECTAL CANCER METASTATIC
     Dosage: 2000 MG DAILY IV
     Route: 042
     Dates: start: 20030819, end: 20030820
  4. LEUCOVORIN [Suspect]
     Indication: COLORECTAL CANCER METASTATIC
     Dosage: 200 MG/M2 IV
     Route: 042
     Dates: start: 20030819, end: 20030820
  5. IRINOTECAN [Suspect]
     Indication: COLORECTAL CANCER METASTATIC
     Dosage: 180 MG/M2 IV
     Route: 042
     Dates: start: 20030819, end: 20030819
  6. CONTRAMAL [Concomitant]

REACTIONS (3)
  - ABDOMINAL PAIN [None]
  - DIARRHOEA [None]
  - VOMITING [None]
